FAERS Safety Report 5817959-8 (Version None)
Quarter: 2008Q3

REPORT INFORMATION
  Report Type: 
  Country: None (occurrence: None)
  Receive Date: 20080722
  Receipt Date: 20070711
  Transmission Date: 20090109
  Serious: No
  Sender: FDA-Public Use
  Company Number: US-BAYER-US-2007-027139

PATIENT
  Age: 44 Year
  Sex: Female

DRUGS (1)
  1. MAGNEVIST [Suspect]
     Indication: NUCLEAR MAGNETIC RESONANCE IMAGING
     Dosage: UNIT DOSE: 15 ML
     Route: 042
     Dates: start: 20070709, end: 20070709

REACTIONS (2)
  - DISCOMFORT [None]
  - INJECTION SITE SWELLING [None]
